FAERS Safety Report 13386610 (Version 1)
Quarter: 2017Q1

REPORT INFORMATION
  Report Type: Spontaneous
  Country: TR (occurrence: TR)
  Receive Date: 20170330
  Receipt Date: 20170330
  Transmission Date: 20170429
  Serious: Yes (Hospitalization, Other)
  Sender: FDA-Public Use
  Company Number: TR-CIPLA LTD.-2017TR04699

PATIENT

DRUGS (8)
  1. ACYCLOVIR. [Suspect]
     Active Substance: ACYCLOVIR
     Indication: HERPES SIMPLEX ENCEPHALITIS
     Dosage: 30 MG/KG, PER DAY
     Route: 042
  2. DIPHENYLHYDANTOIN [Suspect]
     Active Substance: PHENYTOIN
     Indication: SEIZURE
     Dosage: UNK
     Route: 042
  3. LEVETIRACETAM. [Suspect]
     Active Substance: LEVETIRACETAM
     Indication: PARTIAL SEIZURES
     Dosage: UNK
     Route: 048
  4. HALOPERIDOL. [Suspect]
     Active Substance: HALOPERIDOL
     Indication: DYSKINESIA
     Dosage: UNK
     Route: 065
  5. FLUMAZENIL. [Suspect]
     Active Substance: FLUMAZENIL
     Indication: DRUG LEVEL INCREASED
     Dosage: 0.01 MG/KG, PER HOUR
  6. CLOBAZAM [Suspect]
     Active Substance: CLOBAZAM
     Indication: PARTIAL SEIZURES
     Dosage: UNK
     Route: 065
  7. METHYLPREDNISOLONE. [Suspect]
     Active Substance: METHYLPREDNISOLONE
     Indication: DISEASE RECURRENCE
     Dosage: 30 MG/KG, PER DAY
     Route: 042
  8. MIDAZOLAM [Suspect]
     Active Substance: MIDAZOLAM HYDROCHLORIDE
     Indication: PARTIAL SEIZURES
     Dosage: UNK
     Route: 042

REACTIONS (6)
  - Drug level increased [Recovered/Resolved]
  - Hypertension [Unknown]
  - Herpes simplex encephalitis [Unknown]
  - Pseudobulbar palsy [Not Recovered/Not Resolved]
  - Akathisia [Recovering/Resolving]
  - Treatment failure [Unknown]
